FAERS Safety Report 13614617 (Version 1)
Quarter: 2017Q2

REPORT INFORMATION
  Report Type: Spontaneous
  Country: US (occurrence: US)
  Receive Date: 20170606
  Receipt Date: 20170606
  Transmission Date: 20170830
  Serious: Yes (Other)
  Sender: FDA-Public Use
  Company Number: US-PFIZER INC-2017238447

PATIENT
  Age: 16 Year
  Sex: Male

DRUGS (8)
  1. CISPLATIN. [Suspect]
     Active Substance: CISPLATIN
     Indication: OSTEOSARCOMA
     Dosage: UNK UNK, CYCLIC (FOUR CYCLES)
  2. DOXORUBICIN HCL [Suspect]
     Active Substance: DOXORUBICIN HYDROCHLORIDE
     Indication: OSTEOSARCOMA
     Dosage: UNK UNK, CYCLIC (SIX CYCLES )
  3. METHOTREXATE SODIUM. [Suspect]
     Active Substance: METHOTREXATE SODIUM
     Indication: OSTEOSARCOMA
     Dosage: UNK (SIX CYCLES )
  4. CISPLATIN. [Suspect]
     Active Substance: CISPLATIN
     Dosage: 75 MG/M2, FOR ONE DAY
  5. ETOPOSIDE. [Suspect]
     Active Substance: ETOPOSIDE
     Indication: OSTEOSARCOMA
     Dosage: 100 MG/M2, CYCLIC (PER DOSE, EIGHT CYCLES, OVER THE NEXT 6 MONTHS)
  6. IFOSFAMIDE. [Suspect]
     Active Substance: IFOSFAMIDE
     Indication: OSTEOSARCOMA
     Dosage: 1800 MG/M2, CYCLIC (PER DOSE, EIGHT CYCLES,OVER THE NEXT 6 MONTHS)
  7. VINCRISTINE [Concomitant]
     Active Substance: VINCRISTINE
     Indication: OSTEOSARCOMA
     Dosage: 1.5 MG/M2, DAILY (WEEKLY, DISCONTINUED AFTER CYCLE TWO)
  8. CYCLOPHOSPHAMIDE. [Concomitant]
     Active Substance: CYCLOPHOSPHAMIDE
     Indication: OSTEOSARCOMA
     Dosage: 1000 MG/M2, UNK

REACTIONS (2)
  - Primitive neuroectodermal tumour [Recovered/Resolved]
  - Second primary malignancy [Recovered/Resolved]
